FAERS Safety Report 10528571 (Version 1)
Quarter: 2014Q4

REPORT INFORMATION
  Report Type: Spontaneous
  Country: US (occurrence: None)
  Receive Date: 20141017
  Receipt Date: 20141017
  Transmission Date: 20150528
  Serious: No
  Sender: FDA-Public Use
  Company Number: None

PATIENT
  Age: 69 Year
  Sex: Male

DRUGS (1)
  1. PROSCAR [Suspect]
     Active Substance: FINASTERIDE
     Indication: PROSTATOMEGALY

REACTIONS (4)
  - Anxiety [None]
  - Dizziness [None]
  - Mood swings [None]
  - Major depression [None]

NARRATIVE: CASE EVENT DATE: 20141001
